FAERS Safety Report 7757904-1 (Version None)
Quarter: 2011Q3

REPORT INFORMATION
  Report Type: 
  Country: None (occurrence: None)
  Receive Date: 20110918
  Receipt Date: 20110609
  Transmission Date: 20111222
  Serious: Yes (Death, Other)
  Sender: FDA-Public Use
  Company Number: PHHY2011JP25694

PATIENT
  Sex: Male

DRUGS (6)
  1. SUTENT [Concomitant]
     Indication: METASTATIC RENAL CELL CARCINOMA
     Dosage: 50 MG, UNK
     Route: 048
     Dates: start: 20100601, end: 20101108
  2. ALLOPURINOL [Concomitant]
     Dosage: 200 MG, UNK
     Route: 048
     Dates: start: 20101115
  3. AFINITOR [Suspect]
     Indication: METASTATIC RENAL CELL CARCINOMA
     Dosage: 10 MG
     Route: 048
     Dates: start: 20101115, end: 20101117
  4. AFINITOR [Suspect]
     Dosage: 5 MG
     Route: 048
     Dates: start: 20101118, end: 20101210
  5. NORVASC [Concomitant]
     Dosage: 10 MG, UNK
     Route: 048
     Dates: start: 20101115
  6. LANSOPRAZOLE [Concomitant]
     Dosage: 15 MG, UNK
     Route: 048
     Dates: start: 20101115

REACTIONS (4)
  - DRUG INEFFECTIVE [None]
  - NEOPLASM MALIGNANT [None]
  - NEOPLASM PROGRESSION [None]
  - THYROIDITIS SUBACUTE [None]
